FAERS Safety Report 20209912 (Version 1)
Quarter: 2021Q4

REPORT INFORMATION
  Report Type: Spontaneous
  Country: US (occurrence: US)
  Receive Date: 20211221
  Receipt Date: 20211221
  Transmission Date: 20220303
  Serious: Yes (Hospitalization)
  Sender: FDA-Public Use
  Company Number: US-JNJFOC-20211219336

PATIENT
  Age: 56 Year
  Sex: Female
  Weight: 68 kg

DRUGS (7)
  1. TYLENOL [Suspect]
     Active Substance: ACETAMINOPHEN
     Indication: Suicide attempt
     Dosage: ACETAMINOPHEN 6500 MG; TOOK 20 TYLENOL 325 MG TABLETS ON 14-OCT-2002 AT 23:00
     Route: 048
     Dates: start: 20021014, end: 20021014
  2. ACETAMINOPHEN [Suspect]
     Active Substance: ACETAMINOPHEN
     Indication: Product used for unknown indication
     Dosage: 1300 MG/DAY FOR 12 MONTHS
     Route: 048
     Dates: end: 20021015
  3. PAXIL [Concomitant]
     Active Substance: PAROXETINE HYDROCHLORIDE
     Indication: Product used for unknown indication
     Dosage: 20 MG/DAY FOR 02 MONTHS
     Route: 065
     Dates: end: 20021004
  4. WELLBUTRIN [Concomitant]
     Active Substance: BUPROPION HYDROCHLORIDE
     Indication: Product used for unknown indication
     Dosage: 300 MG/DAY FOR 02 MONTHS
     Route: 065
     Dates: end: 20020801
  5. IBUPROFEN [Concomitant]
     Active Substance: IBUPROFEN
     Indication: Product used for unknown indication
     Dosage: UNKNOWN MG FOR 12 MONTHS
     Route: 065
     Dates: end: 20021015
  6. ASPIRIN [Concomitant]
     Active Substance: ASPIRIN
     Indication: Product used for unknown indication
     Dosage: UNKNOWN MG FOR 12 MONTHS
     Route: 065
  7. XANAX [Concomitant]
     Active Substance: ALPRAZOLAM
     Indication: Product used for unknown indication
     Dosage: 0.25 MG/DAY
     Route: 065
     Dates: end: 20021014

REACTIONS (4)
  - Suicide attempt [Recovered/Resolved]
  - Acute hepatic failure [Recovered/Resolved]
  - Acute kidney injury [Recovered/Resolved]
  - Intentional overdose [Recovered/Resolved]
